FAERS Safety Report 15183021 (Version 1)
Quarter: 2018Q3

REPORT INFORMATION
  Report Type: Spontaneous
  Country: US (occurrence: US)
  Receive Date: 20180723
  Receipt Date: 20180723
  Transmission Date: 20181010
  Serious: Yes (Other)
  Sender: FDA-Public Use
  Company Number: US-ALLERGAN-1836185US

PATIENT
  Sex: Male

DRUGS (2)
  1. RESTASIS [Suspect]
     Active Substance: CYCLOSPORINE
     Indication: DRY EYE
     Route: 047
  2. THERA GEL (COAL TAR) [Suspect]
     Active Substance: COAL TAR
     Indication: DRY EYE
     Route: 065

REACTIONS (2)
  - Corneal disorder [Unknown]
  - Drug ineffective [Unknown]
